FAERS Safety Report 18071865 (Version 1)
Quarter: 2020Q3

REPORT INFORMATION
  Report Type: Spontaneous
  Country: US (occurrence: US)
  Receive Date: 20200727
  Receipt Date: 20200727
  Transmission Date: 20201103
  Serious: No
  Sender: FDA-Public Use
  Company Number: US-MYLANLABS-2020M1065947

PATIENT
  Sex: Female
  Weight: 86 kg

DRUGS (1)
  1. FELBATOL [Suspect]
     Active Substance: FELBAMATE
     Indication: EPILEPSY
     Dosage: 3600 MILLIGRAM, QD (DAILY)
     Route: 048

REACTIONS (2)
  - Maternal exposure during pregnancy [Recovered/Resolved]
  - No adverse event [Unknown]
